FAERS Safety Report 20869906 (Version 1)
Quarter: 2022Q2

REPORT INFORMATION
  Report Type: Spontaneous
  Country: FR (occurrence: FR)
  Receive Date: 20220525
  Receipt Date: 20220525
  Transmission Date: 20220720
  Serious: Yes (Hospitalization)
  Sender: FDA-Public Use
  Company Number: None

PATIENT
  Age: 77 Year
  Sex: Male

DRUGS (3)
  1. DEXAMETHASONE [Suspect]
     Active Substance: DEXAMETHASONE
     Indication: Prophylaxis of nausea and vomiting
     Dosage: J1 LE 05/04, J8 LE 12/04, J15 LE 19/04, J22 LE 26/04
     Route: 065
     Dates: start: 20220405, end: 20220426
  2. KYPROLIS [Suspect]
     Active Substance: CARFILZOMIB
     Indication: Plasma cell myeloma
     Dosage: J1-J2, J8-J9, J15-J16
     Route: 041
     Dates: start: 20220405, end: 20220420
  3. ISATUXIMAB [Suspect]
     Active Substance: ISATUXIMAB
     Indication: Plasma cell myeloma
     Dosage: J1 LE 05/04, J8 LE 12/04, J15 LE 19/04, J22 LE 26/04
     Route: 041
     Dates: start: 20220405, end: 20220426

REACTIONS (1)
  - Thrombotic thrombocytopenic purpura [Not Recovered/Not Resolved]

NARRATIVE: CASE EVENT DATE: 20220427
